FAERS Safety Report 5458164-7 (Version None)
Quarter: 2007Q3

REPORT INFORMATION
  Report Type: 
  Country: None (occurrence: None)
  Receive Date: 20070917
  Receipt Date: 20070905
  Transmission Date: 20080115
  Serious: Yes (Hospitalization)
  Sender: FDA-Public Use
  Company Number: CHNY2007GB03034

PATIENT
  Age: 76 Year
  Sex: Female

DRUGS (4)
  1. CALCIUM CARBONATE (NCH)(CALCIUM CARBONATE) UNKNOWN [Suspect]
     Indication: DYSPEPSIA
     Dosage: 6 TO 8 TABLETS DAILY (5.5 G A DAY),
  2. IBUPROFEN [Suspect]
     Indication: OSTEOARTHRITIS
  3. SALBUTAMOL (SALBUTAMOL) [Concomitant]
  4. CALCIUM CHANNEL BLOCKERS (NO INGREDIENTS/SUBSTANCES) [Concomitant]

REACTIONS (10)
  - CHANGE OF BOWEL HABIT [None]
  - CONSTIPATION [None]
  - DIARRHOEA [None]
  - DYSPEPSIA [None]
  - GASTRITIS EROSIVE [None]
  - HYPERCALCAEMIA [None]
  - MILK-ALKALI SYNDROME [None]
  - NOCTURIA [None]
  - POLYDIPSIA [None]
  - POLYURIA [None]
